FAERS Safety Report 7542632-8 (Version None)
Quarter: 2011Q2

REPORT INFORMATION
  Report Type: 
  Country: None (occurrence: None)
  Receive Date: 20110613
  Receipt Date: 20110607
  Transmission Date: 20111010
  Serious: Yes (Hospitalization, Other)
  Sender: FDA-Public Use
  Company Number: FR-SANOFI-AVENTIS-2011SA026963

PATIENT
  Age: 45 Year
  Sex: Female

DRUGS (14)
  1. ACETAMINOPHEN [Suspect]
     Route: 048
     Dates: end: 20110124
  2. COZAAR [Suspect]
     Route: 048
     Dates: start: 20110119, end: 20110127
  3. EUPRESSYL [Suspect]
     Route: 048
     Dates: end: 20110124
  4. OFLOXACIN [Concomitant]
     Dates: start: 20110101
  5. INDAPAMIDE [Suspect]
     Route: 048
     Dates: end: 20110127
  6. LEXOMIL [Concomitant]
  7. NIDREL [Suspect]
     Route: 048
     Dates: end: 20110127
  8. NICARDIPINE HCL [Suspect]
     Route: 048
     Dates: end: 20110122
  9. PANTOPRAZOLE SODIUM [Concomitant]
     Dates: start: 20110101, end: 20110121
  10. EUPRESSYL [Suspect]
     Route: 048
     Dates: start: 20110127
  11. TRAMADOL HCL [Suspect]
     Route: 048
     Dates: end: 20110124
  12. ESOMEPRAZOLE MAGNESIUM [Concomitant]
  13. TENORMIN [Concomitant]
  14. PRIMPERAN TAB [Concomitant]
     Dates: start: 20110101, end: 20110121

REACTIONS (4)
  - CHOLESTASIS [None]
  - GAMMA-GLUTAMYLTRANSFERASE INCREASED [None]
  - CYTOLYTIC HEPATITIS [None]
  - AORTIC DISSECTION [None]
